FAERS Safety Report 5349543-7 (Version None)
Quarter: 2007Q2

REPORT INFORMATION
  Report Type: 
  Country: None (occurrence: None)
  Receive Date: 20070607
  Receipt Date: 20070531
  Transmission Date: 20071010
  Serious: Yes (Hospitalization)
  Sender: FDA-Public Use
  Company Number: JP-MERCK-0705USA03921

PATIENT
  Age: 75 Year
  Sex: Female
  Weight: 50 kg

DRUGS (3)
  1. FOSAMAX [Suspect]
     Indication: OSTEOPOROSIS
     Route: 048
     Dates: start: 20070326, end: 20070515
  2. LORCAM [Concomitant]
     Route: 048
  3. MOBIC [Concomitant]
     Indication: PAIN
     Route: 048
     Dates: start: 20070411, end: 20070515

REACTIONS (1)
  - HEPATIC FUNCTION ABNORMAL [None]
